FAERS Safety Report 4600972-6 (Version None)
Quarter: 2005Q2

REPORT INFORMATION
  Report Type: 
  Country: None (occurrence: None)
  Receive Date: 20050204
  Receipt Date: 20040928
  Transmission Date: 20051028
  Serious: Yes (Hospitalization)
  Sender: FDA-Public Use
  Company Number: PHEH2004US10441

PATIENT
  Age: 15 Year
  Sex: Male

DRUGS (3)
  1. CLOZARIL [Suspect]
     Indication: SCHIZOPHRENIA
     Dosage: 50 MG, TID , ORAL
     Route: 048
     Dates: start: 20040921, end: 20040924
  2. CLOZAPINE [Suspect]
     Indication: SCHIZOPHRENIA
     Dosage: 50 MG, TID, ORAL
     Route: 048
     Dates: start: 20040909, end: 20040920
  3. CLOZAPINE [Suspect]
     Dosage: 50 MG, ONCE/SINGLE
     Dates: start: 20040925, end: 20040925

REACTIONS (15)
  - CARDIAC ENZYMES INCREASED [None]
  - CARDIAC FAILURE CONGESTIVE [None]
  - CARDIAC FUNCTION TEST ABNORMAL [None]
  - CARDIOMYOPATHY [None]
  - CD4 LYMPHOCYTES DECREASED [None]
  - CHEST PAIN [None]
  - DYSPNOEA [None]
  - ENDOCARDITIS [None]
  - EOSINOPHILIC MYOCARDITIS [None]
  - HAEMOPTYSIS [None]
  - LEUKOCYTOSIS [None]
  - NAUSEA [None]
  - NEUTROPHIL COUNT INCREASED [None]
  - PYREXIA [None]
  - TACHYPNOEA [None]
